FAERS Safety Report 21112226 (Version 1)
Quarter: 2022Q3

REPORT INFORMATION
  Report Type: Report from Study
  Country: US (occurrence: US)
  Receive Date: 20220721
  Receipt Date: 20220721
  Transmission Date: 20221027
  Serious: Yes (Other)
  Sender: FDA-Public Use
  Company Number: US-THERAPEUTICSMD-2022TMD00710

PATIENT
  Age: 54 Year
  Sex: Female
  Weight: 70.748 kg

DRUGS (12)
  1. BIJUVA [Suspect]
     Active Substance: ESTRADIOL\PROGESTERONE
     Indication: Hot flush
     Dosage: 1 CAPSULE, 1X/DAY
     Route: 048
     Dates: start: 2020, end: 202201
  2. BIJUVA [Suspect]
     Active Substance: ESTRADIOL\PROGESTERONE
     Indication: Asthenia
     Dosage: 1 CAPSULE, 1X/DAY
     Route: 048
     Dates: start: 202201, end: 20220203
  3. BIJUVA [Suspect]
     Active Substance: ESTRADIOL\PROGESTERONE
     Indication: Feeling abnormal
  4. IMVEXXY [Suspect]
     Active Substance: ESTRADIOL
     Indication: Vulvovaginal dryness
     Dosage: 10 ?G, 2X/WEEK
     Route: 067
     Dates: start: 2020
  5. IMVEXXY [Suspect]
     Active Substance: ESTRADIOL
     Indication: Vaginal disorder
  6. LISINOPRIL [Concomitant]
     Active Substance: LISINOPRIL
     Dosage: 2.5 MG, 1X/DAY
  7. VITAMIN D [Concomitant]
     Active Substance: VITAMIN D NOS
  8. SERENOL [Concomitant]
  9. BIOTIN [Concomitant]
     Active Substance: BIOTIN
  10. COLLAGEN [Concomitant]
     Active Substance: COLLAGEN
  11. OMEGA-3 ACIDS [Concomitant]
     Active Substance: OMEGA-3 FATTY ACIDS
  12. VITAMINS [Concomitant]
     Active Substance: VITAMINS

REACTIONS (4)
  - Uterine polyp [Recovered/Resolved]
  - Endometrial thickening [Recovered/Resolved]
  - Postmenopausal haemorrhage [Recovered/Resolved]
  - Uterine leiomyoma [Recovered/Resolved]

NARRATIVE: CASE EVENT DATE: 20220111
